FAERS Safety Report 4748665-9 (Version None)
Quarter: 2005Q3

REPORT INFORMATION
  Report Type: 
  Country: None (occurrence: None)
  Receive Date: 20050819
  Receipt Date: 20050810
  Transmission Date: 20060218
  Serious: Yes (Other)
  Sender: FDA-Public Use
  Company Number: PHEH2005US08933

PATIENT
  Age: 48 Year
  Sex: Female

DRUGS (1)
  1. MYFORTIC [Suspect]
     Indication: RENAL TRANSPLANT

REACTIONS (7)
  - BIPOLAR I DISORDER [None]
  - BLOOD GLUCOSE ABNORMAL [None]
  - CONFUSIONAL STATE [None]
  - DIZZINESS [None]
  - HYPOMENORRHOEA [None]
  - MOOD SWINGS [None]
  - TREMOR [None]
